FAERS Safety Report 5352317-4 (Version None)
Quarter: 2007Q2

REPORT INFORMATION
  Report Type: 
  Country: None (occurrence: None)
  Receive Date: 20070607
  Receipt Date: 20070607
  Transmission Date: 20071010
  Serious: Yes (Hospitalization)
  Sender: FDA-Public Use
  Company Number: None

PATIENT
  Sex: Female
  Weight: 101.6 kg

DRUGS (2)
  1. CISPLATIN [Suspect]
     Dosage: 100 MG
  2. TAXOL [Suspect]
     Dosage: 270 MG

REACTIONS (3)
  - CONSTIPATION [None]
  - OBSTRUCTION [None]
  - PAIN [None]
